FAERS Safety Report 8418521-3 (Version None)
Quarter: 2012Q2

REPORT INFORMATION
  Report Type: 
  Country: None (occurrence: None)
  Receive Date: 20120530
  Receipt Date: 20120514
  Transmission Date: 20120825
  Serious: Yes (Other)
  Sender: FDA-Public Use
  Company Number: 2012SP027195

PATIENT
  Age: 10 Year
  Sex: Male

DRUGS (2)
  1. CLARITIN-D 24 HOUR [Suspect]
     Indication: SEASONAL ALLERGY
     Dosage: 10 MG;PRN;PO 10 MG;ONCE;PO
     Route: 048
  2. CLARITIN-D 24 HOUR [Suspect]
     Indication: SEASONAL ALLERGY
     Dosage: 10 MG;PRN;PO 10 MG;ONCE;PO
     Route: 048
     Dates: start: 20120510

REACTIONS (7)
  - MUSCULAR WEAKNESS [None]
  - BRUXISM [None]
  - APHASIA [None]
  - SOMNOLENCE [None]
  - SPEECH DISORDER [None]
  - DEPRESSED LEVEL OF CONSCIOUSNESS [None]
  - CONVULSION [None]
